FAERS Safety Report 19884656 (Version 1)
Quarter: 2021Q3

REPORT INFORMATION
  Report Type: Spontaneous
  Country: US (occurrence: US)
  Receive Date: 20210927
  Receipt Date: 20210927
  Transmission Date: 20211014
  Serious: No
  Sender: FDA-Public Use
  Company Number: US-SUN PHARMACEUTICAL INDUSTRIES LTD-2021R1-303121

PATIENT

DRUGS (1)
  1. GANIRELIX [Suspect]
     Active Substance: GANIRELIX
     Indication: IN VITRO FERTILISATION
     Dosage: UNK
     Route: 065

REACTIONS (2)
  - Pain [Unknown]
  - Injection site haemorrhage [Unknown]
